FAERS Safety Report 5739549-8 (Version None)
Quarter: 2008Q2

REPORT INFORMATION
  Report Type: 
  Country: None (occurrence: None)
  Receive Date: 20080515
  Receipt Date: 20080509
  Transmission Date: 20081010
  Serious: Yes (Other)
  Sender: FDA-Public Use
  Company Number: AU-BOEHRINGER INGELHEIM GMBH, GERMANY-2008-BP-07383AU

PATIENT
  Sex: Male

DRUGS (8)
  1. MOBIC [Suspect]
  2. ALDACTONE [Suspect]
  3. ALLOPURINOL [Suspect]
  4. GLICLAZIDE [Suspect]
  5. IRBESARTAN [Suspect]
  6. METFORMIN HCL [Suspect]
  7. PERINDOPRIL ERBUMINE [Suspect]
  8. WARFARIN SODIUM [Suspect]

REACTIONS (4)
  - ACIDOSIS [None]
  - BLOOD POTASSIUM INCREASED [None]
  - GASTROINTESTINAL HAEMORRHAGE [None]
  - RENAL FAILURE ACUTE [None]
